FAERS Safety Report 5329906-6 (Version None)
Quarter: 2007Q2

REPORT INFORMATION
  Report Type: 
  Country: None (occurrence: None)
  Receive Date: 20070521
  Receipt Date: 20070507
  Transmission Date: 20071010
  Serious: Yes (Death)
  Sender: FDA-Public Use
  Company Number: US-JNJFOC-20070501993

PATIENT
  Age: 31 Year
  Sex: Male
  Weight: 90.72 kg

DRUGS (12)
  1. DURAGESIC-100 [Suspect]
     Route: 062
  2. DURAGESIC-100 [Suspect]
     Route: 062
  3. DURAGESIC-100 [Suspect]
     Indication: PAIN
     Route: 062
  4. DILANTIN [Concomitant]
     Indication: CONVULSION
     Route: 048
  5. AMBIEN [Concomitant]
     Indication: SLEEP DISORDER
     Route: 048
  6. XANAX [Concomitant]
     Indication: ANXIETY
     Route: 048
  7. PHENERGAN HCL [Concomitant]
     Route: 048
  8. LAMICTAL [Concomitant]
     Indication: CONVULSION
     Route: 048
  9. LEXAPRO [Concomitant]
     Indication: DEPRESSION
     Route: 065
  10. PREVACID [Concomitant]
     Indication: GASTROOESOPHAGEAL REFLUX DISEASE
     Route: 065
  11. ALBUTEROL [Concomitant]
     Indication: DYSPNOEA
     Route: 065
  12. PERIACTIN [Concomitant]
     Indication: SINUS DISORDER
     Route: 048

REACTIONS (3)
  - DEATH [None]
  - DRUG INEFFECTIVE [None]
  - RESPIRATORY DEPRESSION [None]
